FAERS Safety Report 12178577 (Version 1)
Quarter: 2016Q1

REPORT INFORMATION
  Report Type: Spontaneous
  Country: FR (occurrence: FR)
  Receive Date: 20160315
  Receipt Date: 20160315
  Transmission Date: 20160526
  Serious: Yes (Hospitalization)
  Sender: FDA-Public Use
  Company Number: FR-ASTRAZENECA-2016SE26080

PATIENT
  Age: 27987 Day
  Sex: Male

DRUGS (8)
  1. XARELTO [Suspect]
     Active Substance: RIVAROXABAN
     Route: 048
     Dates: start: 20151207
  2. ATENOLOL. [Suspect]
     Active Substance: ATENOLOL
     Route: 048
     Dates: start: 2011
  3. FLUDEX SR [Suspect]
     Active Substance: INDAPAMIDE
     Route: 048
     Dates: start: 20151207
  4. INEXIUM [Suspect]
     Active Substance: ESOMEPRAZOLE
     Route: 048
  5. PERINDOPRIL [Suspect]
     Active Substance: PERINDOPRIL
     Route: 048
  6. GLICLAZIDE [Suspect]
     Active Substance: GLICLAZIDE
     Route: 048
     Dates: end: 20151215
  7. KALEORID [Concomitant]
     Active Substance: POTASSIUM CHLORIDE
  8. BACLOFEN. [Suspect]
     Active Substance: BACLOFEN
     Route: 048
     Dates: start: 2000, end: 20151215

REACTIONS (1)
  - Acute kidney injury [Recovered/Resolved]

NARRATIVE: CASE EVENT DATE: 20151216
